FAERS Safety Report 8610255-5 (Version None)
Quarter: 2012Q3

REPORT INFORMATION
  Report Type: 
  Country: None (occurrence: None)
  Receive Date: 20120810
  Receipt Date: 20120810
  Transmission Date: 20120928
  Serious: Yes (Hospitalization)
  Sender: FDA-Public Use
  Company Number: None

PATIENT
  Sex: Female
  Weight: 58.5 kg

DRUGS (5)
  1. CYCLOPHOSPHAMIDE [Suspect]
     Dosage: 1200 MG
  2. VINCRISTINE SULFATE [Suspect]
     Dosage: 2 MG
  3. RITUXIMAB (MCAB C2B8 ANTI CD20, CHIMERIC) 600 MG [Suspect]
     Dosage: 600 MG
  4. PREDNISONE [Suspect]
     Dosage: 300 MG
  5. DOXORUBICIN HCL [Suspect]
     Dosage: 80 MG

REACTIONS (1)
  - MENINGITIS VIRAL [None]
